FAERS Safety Report 4458260-7 (Version None)
Quarter: 2004Q3

REPORT INFORMATION
  Report Type: 
  Country: None (occurrence: None)
  Receive Date: 20040924
  Receipt Date: 20040625
  Transmission Date: 20050211
  Serious: Yes (Other)
  Sender: FDA-Public Use
  Company Number: US-BRISTOL-MYERS SQUIBB COMPANY-12625448

PATIENT
  Age: 76 Year
  Sex: Female
  Weight: 92 kg

DRUGS (7)
  1. TAXOL [Suspect]
     Indication: OVARIAN CANCER
     Dosage: CYCLE 1: 03-FEB-2004
     Route: 042
     Dates: start: 20040518, end: 20040518
  2. CARBOPLATIN [Suspect]
     Indication: OVARIAN CANCER
     Dosage: AUC 6; CYCLE 1: 03-FEB-2004
     Route: 042
     Dates: start: 20040518, end: 20040518
  3. BENADRYL [Concomitant]
     Indication: PREMEDICATION
     Route: 042
     Dates: start: 20040501, end: 20040501
  4. CIMETIDINE [Concomitant]
     Indication: PREMEDICATION
     Route: 042
     Dates: start: 20040501, end: 20040501
  5. KYTRIL [Concomitant]
     Indication: PREMEDICATION
     Route: 042
     Dates: start: 20040501, end: 20040501
  6. DECADRON [Concomitant]
     Route: 042
     Dates: start: 20040501, end: 20040501
  7. TAMOXIFEN CITRATE [Concomitant]

REACTIONS (1)
  - PULMONARY FIBROSIS [None]
